FAERS Safety Report 4944359-5 (Version None)
Quarter: 2006Q1

REPORT INFORMATION
  Report Type: 
  Country: None (occurrence: None)
  Receive Date: 20060315
  Receipt Date: 20051007
  Transmission Date: 20060701
  Serious: Yes (Hospitalization)
  Sender: FDA-Public Use
  Company Number: US-MERCK-0510USA06379

PATIENT
  Age: 55 Year
  Sex: Female
  Weight: 64 kg

DRUGS (4)
  1. VIOXX [Suspect]
     Indication: PAIN MANAGEMENT
     Route: 048
     Dates: start: 20020707, end: 20020730
  2. HYDRALAZINE [Concomitant]
     Route: 065
  3. HYDROCHLOROTHIAZIDE [Concomitant]
     Route: 065
  4. RESERPINE [Concomitant]
     Route: 065

REACTIONS (11)
  - CHOKING [None]
  - DEPRESSION [None]
  - DYSARTHRIA [None]
  - DYSPHAGIA [None]
  - HEADACHE [None]
  - HEMIPARESIS [None]
  - ISCHAEMIC STROKE [None]
  - NAUSEA [None]
  - PARKINSON'S DISEASE [None]
  - SPINAL OSTEOARTHRITIS [None]
  - TREMOR [None]
